FAERS Safety Report 16150999 (Version 1)
Quarter: 2019Q2

REPORT INFORMATION
  Report Type: Spontaneous
  Country: US (occurrence: US)
  Receive Date: 20190228
  Receipt Date: 20190228
  Transmission Date: 20190711
  Serious: No
  Sender: FDA-Public Use
  Company Number: None

PATIENT
  Sex: Male

DRUGS (1)
  1. ENTECAVIR. [Suspect]
     Active Substance: ENTECAVIR
     Route: 048
     Dates: start: 20180303

REACTIONS (3)
  - Hepatitis viral [None]
  - Chills [None]
  - Pyrexia [None]
